FAERS Safety Report 12160550 (Version 1)
Quarter: 2016Q1

REPORT INFORMATION
  Report Type: Spontaneous
  Country: GB (occurrence: GB)
  Receive Date: 20160308
  Receipt Date: 20160308
  Transmission Date: 20160526
  Serious: Yes (Other)
  Sender: FDA-Public Use
  Company Number: PHHY2016GB028095

PATIENT
  Age: 68 Year
  Sex: Female
  Weight: 65.31 kg

DRUGS (1)
  1. CLARITHROMYCIN. [Suspect]
     Active Substance: CLARITHROMYCIN
     Indication: CELLULITIS
     Dosage: 500 MG, BID
     Route: 048
     Dates: start: 20160214, end: 20160220

REACTIONS (5)
  - Eye swelling [Recovering/Resolving]
  - Palpitations [Recovering/Resolving]
  - Lethargy [Recovering/Resolving]
  - Dermatitis allergic [Recovering/Resolving]
  - Swelling face [Recovering/Resolving]

NARRATIVE: CASE EVENT DATE: 20160215
